FAERS Safety Report 12734349 (Version 2)
Quarter: 2016Q4

REPORT INFORMATION
  Report Type: Spontaneous
  Country: JP (occurrence: JP)
  Receive Date: 20160912
  Receipt Date: 20161020
  Transmission Date: 20170207
  Serious: Yes (Other)
  Sender: FDA-Public Use
  Company Number: JP-ROCHE-1828945

PATIENT
  Age: 7 Year
  Sex: Male
  Weight: 63 kg

DRUGS (5)
  1. ACTEMRA [Suspect]
     Active Substance: TOCILIZUMAB
     Indication: JUVENILE IDIOPATHIC ARTHRITIS
     Route: 041
     Dates: start: 200405
  2. METHOTREXATE. [Concomitant]
     Active Substance: METHOTREXATE
     Indication: JUVENILE IDIOPATHIC ARTHRITIS
     Dosage: THE FRACTIONATION DOSE FREQUENCY IS UNCERTAIN.
     Route: 048
     Dates: start: 20100105
  3. GASTER [Concomitant]
     Active Substance: FAMOTIDINE
     Indication: PROPHYLAXIS
     Dosage: AMOUNT OF 1 ONCE ADMINISTRATION: 20 (UNIT UNCERTAINTY)
     Route: 048
  4. PREDNISOLONE. [Concomitant]
     Active Substance: PREDNISOLONE
     Indication: JUVENILE IDIOPATHIC ARTHRITIS
     Dosage: 7MG+6MG/DAY
     Route: 048
     Dates: start: 2004
  5. PROGRAF [Concomitant]
     Active Substance: TACROLIMUS\TACROLIMUS ANHYDROUS
     Indication: JUVENILE IDIOPATHIC ARTHRITIS
     Dosage: 2.5 MG+2MG/DAY
     Route: 048
     Dates: start: 20090306

REACTIONS (7)
  - Urticaria [Recovered/Resolved]
  - Arthritis [Recovering/Resolving]
  - Hypertension [Unknown]
  - Osteoporosis [Unknown]
  - Administration site reaction [Not Recovered/Not Resolved]
  - Arthralgia [Not Recovered/Not Resolved]
  - Rash [Unknown]

NARRATIVE: CASE EVENT DATE: 200711
